FAERS Safety Report 12637416 (Version 2)
Quarter: 2016Q3

REPORT INFORMATION
  Report Type: Spontaneous
  Country: US (occurrence: US)
  Receive Date: 20160809
  Receipt Date: 20160819
  Transmission Date: 20161109
  Serious: No
  Sender: FDA-Public Use
  Company Number: US-BEH-2016061297

PATIENT
  Sex: Female
  Weight: 68.4 kg

DRUGS (6)
  1. PRIVIGEN [Suspect]
     Active Substance: HUMAN IMMUNOGLOBULIN G
     Indication: INTENSIVE CARE UNIT ACQUIRED WEAKNESS
  2. NOVOLOG [Concomitant]
     Active Substance: INSULIN ASPART
  3. PRIVIGEN [Suspect]
     Active Substance: HUMAN IMMUNOGLOBULIN G
     Indication: HEPATITIS C
     Dosage: 25 G, Q3W
     Route: 042
     Dates: start: 20150806
  4. SODIUM CHLORIDE. [Concomitant]
     Active Substance: SODIUM CHLORIDE
  5. DIPHENHYDRAMINE. [Concomitant]
     Active Substance: DIPHENHYDRAMINE
  6. EPIPEN [Concomitant]
     Active Substance: EPINEPHRINE

REACTIONS (2)
  - Fatigue [Unknown]
  - Asthenia [Unknown]
